FAERS Safety Report 24085200 (Version 1)
Quarter: 2024Q3

REPORT INFORMATION
  Report Type: Report from Study
  Country: US (occurrence: US)
  Receive Date: 20240712
  Receipt Date: 20240712
  Transmission Date: 20241016
  Serious: Yes (Hospitalization, Other)
  Sender: ACCORD
  Company Number: US-Accord-433911

PATIENT
  Age: 47 Year
  Sex: Male

DRUGS (4)
  1. CLOZAPINE [Suspect]
     Active Substance: CLOZAPINE
     Indication: Product used for unknown indication
     Dosage: 250 MG AT BEDTIME AND 50 MG DAILY IN THE MORNING
  2. MEMANTINE [Concomitant]
     Active Substance: MEMANTINE
     Dosage: 10 MG BID
  3. VENLAFAXINE [Concomitant]
     Active Substance: VENLAFAXINE HYDROCHLORIDE
     Dosage: QD WITH BREAKFAST
  4. MELATONIN [Concomitant]
     Active Substance: MELATONIN
     Dosage: 3 MG AT BEDTIME

REACTIONS (8)
  - Gastrointestinal motility disorder [Unknown]
  - Mental status changes [Unknown]
  - White blood cell count increased [Unknown]
  - Red blood cell count increased [Unknown]
  - Immature granulocyte count increased [Not Recovered/Not Resolved]
  - Eosinophil count increased [Recovered/Resolved]
  - Haematocrit increased [Recovered/Resolved]
  - Neutrophilia [Recovered/Resolved]

NARRATIVE: CASE EVENT DATE: 20240523
